FAERS Safety Report 8828988 (Version 2)
Quarter: 2012Q4

REPORT INFORMATION
  Report Type: 
  Country: FR (occurrence: FR)
  Receive Date: 20121009
  Receipt Date: 20121106
  Transmission Date: 20130627
  Serious: Yes (Other)
  Sender: FDA-Public Use
  Company Number: FR-BIOGENIDEC-2012BI043483

PATIENT
  Age: 33 Year
  Sex: Male

DRUGS (12)
  1. TYSABRI [Suspect]
     Indication: MULTIPLE SCLEROSIS
     Route: 042
     Dates: start: 20080825, end: 20120830
  2. BACLOFENE [Concomitant]
  3. LYRICA [Concomitant]
  4. LYRICA [Concomitant]
  5. ANAFRANIL [Concomitant]
  6. MANTADIX [Concomitant]
  7. FURADOINE [Concomitant]
  8. BACTRIM [Concomitant]
  9. FORLAX [Concomitant]
  10. ANTI COLIBACILLE SERUM [Concomitant]
  11. HYPERIUM [Concomitant]
  12. TARKA [Concomitant]

REACTIONS (1)
  - Clear cell renal cell carcinoma [Not Recovered/Not Resolved]
